FAERS Safety Report 6960476-2 (Version None)
Quarter: 2010Q3

REPORT INFORMATION
  Report Type: 
  Country: None (occurrence: None)
  Receive Date: 20100823
  Receipt Date: 20100701
  Transmission Date: 20110219
  Serious: No
  Sender: FDA-Public Use
  Company Number: 014984

PATIENT
  Sex: Female
  Weight: 68 kg

DRUGS (5)
  1. CIMZIA [Suspect]
     Indication: CROHN'S DISEASE
     Dosage: (400 MG 1X/MONTH SUBCUTANEOUS) ; (400 MG 1X/MONTH SUBCUTANEOUS)
     Route: 058
     Dates: start: 20091101, end: 20100201
  2. CIMZIA [Suspect]
     Indication: CROHN'S DISEASE
     Dosage: (400 MG 1X/MONTH SUBCUTANEOUS) ; (400 MG 1X/MONTH SUBCUTANEOUS)
     Route: 058
     Dates: start: 20100609, end: 20100609
  3. CYMBALTA [Concomitant]
  4. ZYRTEC [Concomitant]
  5. ACIPHEX [Concomitant]

REACTIONS (1)
  - ARTHRALGIA [None]
